FAERS Safety Report 8243610-6 (Version None)
Quarter: 2012Q1

REPORT INFORMATION
  Report Type: 
  Country: None (occurrence: None)
  Receive Date: 20120329
  Receipt Date: 20120321
  Transmission Date: 20120608
  Serious: Yes (Hospitalization)
  Sender: FDA-Public Use
  Company Number: US-BAYER-2012-028764

PATIENT
  Age: 45 Year
  Sex: Female
  Weight: 100 kg

DRUGS (14)
  1. YAZ [Suspect]
     Indication: POLYCYSTIC OVARIES
  2. LITHIUM CARBONATE [Concomitant]
     Dosage: 450 MG, BID
     Route: 048
     Dates: start: 20090202
  3. RHINOCORT [Concomitant]
     Dosage: 1 SPRAY EACH NOSTRIL, QD
     Route: 045
     Dates: start: 20090202
  4. CALCIUM CARBONATE [Concomitant]
     Dosage: UNK
     Route: 048
     Dates: start: 20090325
  5. CITALOPRAM HYDROBROMIDE [Concomitant]
     Dosage: 20 MG, QD
     Dates: start: 20090202
  6. ALLEGRA-D [FEXOFENADINE HYDROCHLORIDE,PSEUDOEPHEDRINE HYDROCHLORID [Concomitant]
     Dosage: UNK UNK, QD
     Route: 048
     Dates: start: 20090202
  7. ECHINACEA [Concomitant]
     Dosage: UNK
     Route: 048
     Dates: start: 20090325
  8. AMITRIPTYLINE HCL [Concomitant]
     Dosage: 25 MG, HS
  9. VANCOMYCIN [Concomitant]
  10. PERCOCET [Concomitant]
  11. MULTI-VITAMIN [Concomitant]
     Dosage: UNK
     Route: 048
     Dates: start: 20090325
  12. ASTELIN [Concomitant]
     Dosage: 137 MCG, 2 SPRAYS DAILY
     Route: 045
     Dates: start: 20090202
  13. IBUPROFEN [Concomitant]
     Dosage: 400 MG, EVERY 4-5 HOURS
     Route: 048
     Dates: start: 20090202
  14. LOXITANE [Concomitant]
     Dosage: 25 MG, 2 CAPSULES DAILY BEDTIME
     Route: 048

REACTIONS (2)
  - PULMONARY EMBOLISM [None]
  - DEEP VEIN THROMBOSIS [None]
